FAERS Safety Report 14784267 (Version 1)
Quarter: 2018Q2

REPORT INFORMATION
  Report Type: Spontaneous
  Country: FR (occurrence: FR)
  Receive Date: 20180420
  Receipt Date: 20180420
  Transmission Date: 20180711
  Serious: Yes (Other)
  Sender: FDA-Public Use
  Company Number: FR-MERCK KGAA-2046152

PATIENT
  Age: 70 Year
  Sex: Female

DRUGS (1)
  1. NOVOTHYROX [Suspect]
     Active Substance: LEVOTHYROXINE SODIUM
     Indication: POST PROCEDURAL HYPOTHYROIDISM
     Dates: start: 20170426, end: 20170918

REACTIONS (16)
  - Tinnitus [Recovering/Resolving]
  - Heart rate increased [Recovering/Resolving]
  - Tremor [Recovering/Resolving]
  - Dizziness [Recovering/Resolving]
  - Anxiety [Recovering/Resolving]
  - Impatience [Recovering/Resolving]
  - Headache [Recovering/Resolving]
  - Diarrhoea [Recovering/Resolving]
  - Mood altered [Recovering/Resolving]
  - Loss of personal independence in daily activities [Recovering/Resolving]
  - Muscle spasms [Recovering/Resolving]
  - Fatigue [Recovering/Resolving]
  - Hyperthyroidism [Recovered/Resolved]
  - Abdominal pain upper [Recovering/Resolving]
  - Insomnia [Recovering/Resolving]
  - Sleep disorder [Recovering/Resolving]

NARRATIVE: CASE EVENT DATE: 20171023
